FAERS Safety Report 8803300 (Version 2)
Quarter: 2012Q4

REPORT INFORMATION
  Report Type: 
  Country: US (occurrence: US)
  Receive Date: 20120924
  Receipt Date: 20121004
  Transmission Date: 20130627
  Serious: Yes (Other)
  Sender: FDA-Public Use
  Company Number: PHEH2012US018369

PATIENT
  Sex: Female

DRUGS (5)
  1. DIOVAN [Suspect]
  2. TRAMADOL [Concomitant]
  3. L-THYROXINE [Concomitant]
  4. VENLAFAXINE [Concomitant]
  5. ATORVASTATIN [Concomitant]

REACTIONS (2)
  - Macular degeneration [Unknown]
  - Memory impairment [Unknown]
